FAERS Safety Report 14479064 (Version 4)
Quarter: 2019Q1

REPORT INFORMATION
  Report Type: Other
  Country: FR (occurrence: FR)
  Receive Date: 20180202
  Receipt Date: 20190201
  Transmission Date: 20190417
  Serious: Yes (Life-Threatening, Other)
  Sender: FDA-Public Use
  Company Number: FR-APOTEX-2018AP006245

PATIENT
  Age: 46 Year
  Sex: Male

DRUGS (3)
  1. NORPROLAC [Suspect]
     Active Substance: QUINAGOLIDE HYDROCHLORIDE
     Indication: SUICIDE ATTEMPT
     Dosage: 75 ?G, UNK
     Route: 048
  2. PAROXETINE TABLET [Suspect]
     Active Substance: PAROXETINE
     Indication: SUICIDE ATTEMPT
     Dosage: UNK
     Route: 048
  3. BROMAZEPAM [Suspect]
     Active Substance: BROMAZEPAM
     Indication: SUICIDE ATTEMPT
     Dosage: UNK
     Route: 048

REACTIONS (2)
  - Poisoning deliberate [Recovered/Resolved]
  - Coma [Recovered/Resolved]

NARRATIVE: CASE EVENT DATE: 20171015
